FAERS Safety Report 18348039 (Version 2)
Quarter: 2020Q4

REPORT INFORMATION
  Report Type: Spontaneous
  Country: US (occurrence: US)
  Receive Date: 20201006
  Receipt Date: 20201217
  Transmission Date: 20210114
  Serious: No
  Sender: FDA-Public Use
  Company Number: US-GILEAD-2020-0497119

PATIENT
  Sex: Male

DRUGS (2)
  1. SOFOSBUVIR;VELPATASVIR [Suspect]
     Active Substance: SOFOSBUVIR\VELPATASVIR
     Indication: CHRONIC HEPATITIS C
     Dosage: 1 DOSAGE FORM, QD
     Route: 048
     Dates: start: 20200908, end: 20201205
  2. SUBOXONE [Concomitant]
     Active Substance: BUPRENORPHINE HYDROCHLORIDE\NALOXONE HYDROCHLORIDE

REACTIONS (10)
  - Headache [Recovered/Resolved]
  - Therapeutic response unexpected [Not Recovered/Not Resolved]
  - Neuropathy peripheral [Recovered/Resolved]
  - Depression [Recovered/Resolved]
  - Heart rate decreased [Recovered/Resolved]
  - Memory impairment [Recovered/Resolved]
  - Product dose omission issue [Recovered/Resolved]
  - Rhinorrhoea [Recovered/Resolved]
  - Mood swings [Recovered/Resolved]
  - Fatigue [Recovered/Resolved]
